FAERS Safety Report 15582520 (Version 1)
Quarter: 2018Q4

REPORT INFORMATION
  Report Type: Spontaneous
  Country: US (occurrence: US)
  Receive Date: 20181105
  Receipt Date: 20181105
  Transmission Date: 20190205
  Serious: Yes (Other)
  Sender: FDA-Public Use
  Company Number: None

PATIENT
  Age: 58 Year
  Sex: Female
  Weight: 54 kg

DRUGS (5)
  1. PHENOBARBITAL. [Concomitant]
     Active Substance: PHENOBARBITAL
  2. ASPIRIN. [Concomitant]
     Active Substance: ASPIRIN
  3. STOOL SOFTENER (DOCUSATE) [Concomitant]
     Active Substance: DOCUSATE
  4. LEVOTHYROXINE. [Concomitant]
     Active Substance: LEVOTHYROXINE
  5. RISEDRONATE. S/N : 45053. GTIN : 00360505316502 [Suspect]
     Active Substance: RISEDRONATE SODIUM
     Indication: OSTEOPOROSIS
     Dosage: ?          QUANTITY:1 TABLET(S);OTHER FREQUENCY:ONCE A WEEK.;?
     Route: 048
     Dates: start: 20181014, end: 20181028

REACTIONS (3)
  - Hypoaesthesia [None]
  - Therapy cessation [None]
  - Paraesthesia [None]

NARRATIVE: CASE EVENT DATE: 20181018
